FAERS Safety Report 9184886 (Version 1)
Quarter: 2013Q1

REPORT INFORMATION
  Report Type: Spontaneous
  Country: US (occurrence: US)
  Receive Date: 20130325
  Receipt Date: 20130325
  Transmission Date: 20140127
  Serious: Yes (Other)
  Sender: FDA-Public Use
  Company Number: US-BRISTOL-MYERS SQUIBB COMPANY-16515413

PATIENT
  Age: 56 Year
  Sex: Female

DRUGS (6)
  1. ERBITUX [Suspect]
     Dosage: OVER A YEAR,RECEIVED 1ST TREATMENT
  2. BETOPTIC [Concomitant]
  3. FLOVENT [Concomitant]
  4. FLONASE [Concomitant]
  5. PROTONIX [Concomitant]
  6. ZOFRAN [Concomitant]

REACTIONS (9)
  - Rash generalised [Unknown]
  - Skin fissures [Unknown]
  - Onychoclasis [Unknown]
  - Onychomycosis [Unknown]
  - Hair colour changes [Unknown]
  - Hair texture abnormal [Unknown]
  - Pruritus [Unknown]
  - Skin exfoliation [Unknown]
  - Dry skin [Unknown]
